FAERS Safety Report 21174231 (Version 2)
Quarter: 2024Q2

REPORT INFORMATION
  Report Type: Spontaneous
  Country: US (occurrence: US)
  Receive Date: 20220804
  Receipt Date: 20240425
  Transmission Date: 20240716
  Serious: Yes (Other)
  Sender: FDA-Public Use
  Company Number: US-NOVARTISPH-NVSC2022US175230

PATIENT
  Age: 11 Year
  Sex: Female

DRUGS (4)
  1. TRAMETINIB [Suspect]
     Active Substance: TRAMETINIB
     Indication: Astrocytoma, low grade
     Dosage: 0.025 MG/KG, QD
     Route: 065
  2. TRAMETINIB [Suspect]
     Active Substance: TRAMETINIB
     Indication: Nervous system neoplasm
  3. LENALIDOMIDE [Suspect]
     Active Substance: LENALIDOMIDE
     Indication: Astrocytoma, low grade
     Dosage: 25 MG/M2, QD, ON DAYS 1-21 OF EACH 28-DAY CYCLE
     Route: 065
  4. LENALIDOMIDE [Suspect]
     Active Substance: LENALIDOMIDE
     Indication: Nervous system neoplasm

REACTIONS (6)
  - Astrocytoma, low grade [Recovering/Resolving]
  - Malignant neoplasm progression [Recovering/Resolving]
  - Cardiac ventricular thrombosis [Recovered/Resolved]
  - Thrombosis [Recovered/Resolved]
  - Ventricular dysfunction [Recovered/Resolved]
  - Drug ineffective [Unknown]
